FAERS Safety Report 6145532-3 (Version None)
Quarter: 2009Q2

REPORT INFORMATION
  Report Type: 
  Country: None (occurrence: None)
  Receive Date: 20090402
  Receipt Date: 20090317
  Transmission Date: 20091009
  Serious: Yes (Death, Other)
  Sender: FDA-Public Use
  Company Number: 200819194GPV

PATIENT
  Sex: 0

DRUGS (3)
  1. FLUDARABINE PHOSPHATE [Suspect]
     Indication: CHRONIC LYMPHOCYTIC LEUKAEMIA
     Dosage: 40 MG/M2, ORAL
     Route: 048
  2. CAMPATH [Suspect]
     Indication: CHRONIC LYMPHOCYTIC LEUKAEMIA
     Dosage: SUBCUTANEOUS
     Route: 058
  3. CYCLOPHOSPHAMIDE [Suspect]
     Indication: CHRONIC LYMPHOCYTIC LEUKAEMIA
     Dosage: 250 MG/M2, ORAL
     Route: 048

REACTIONS (9)
  - CUTANEOUS TUBERCULOSIS [None]
  - CYTOMEGALOVIRUS INFECTION [None]
  - ESCHERICHIA SEPSIS [None]
  - LOWER RESPIRATORY TRACT INFECTION BACTERIAL [None]
  - NEUTROPENIA [None]
  - NOCARDIOSIS [None]
  - PULMONARY TUBERCULOSIS [None]
  - RESPIRATORY FAILURE [None]
  - THROMBOCYTOPENIA [None]
